FAERS Safety Report 6171476-7 (Version None)
Quarter: 2009Q2

REPORT INFORMATION
  Report Type: 
  Country: None (occurrence: None)
  Receive Date: 20090429
  Receipt Date: 20090415
  Transmission Date: 20091009
  Serious: Yes (Hospitalization, Disabling)
  Sender: FDA-Public Use
  Company Number: PH-PFIZER INC-2008090297

PATIENT

DRUGS (3)
  1. FESOTERODINE [Suspect]
     Indication: HYPERTONIC BLADDER
     Dosage: 4 MG, 1X/DAY
     Route: 048
     Dates: start: 20081024, end: 20081026
  2. CIPROFLOXACIN [Concomitant]
     Route: 048
     Dates: start: 20081023
  3. ALFUZOSIN HCL [Concomitant]
     Route: 048
     Dates: start: 20080616

REACTIONS (1)
  - DYSURIA [None]
